FAERS Safety Report 12994231 (Version 1)
Quarter: 2016Q4

REPORT INFORMATION
  Report Type: Spontaneous
  Country: US (occurrence: US)
  Receive Date: 20161202
  Receipt Date: 20161202
  Transmission Date: 20170207
  Serious: Yes (Hospitalization)
  Sender: FDA-Public Use
  Company Number: None

PATIENT
  Age: 30 Year
  Sex: Female

DRUGS (12)
  1. PERCOCET [Concomitant]
     Active Substance: ACETAMINOPHEN\OXYCODONE HYDROCHLORIDE
  2. DROXIA [Concomitant]
     Active Substance: HYDROXYUREA
  3. EPOGEN [Concomitant]
     Active Substance: ERYTHROPOIETIN
  4. ELAVIL [Concomitant]
     Active Substance: AMITRIPTYLINE HYDROCHLORIDE
  5. ELIQUIS [Concomitant]
     Active Substance: APIXABAN
  6. METHADONE JCL INTESOL [Concomitant]
  7. PROTONIX [Concomitant]
     Active Substance: PANTOPRAZOLE SODIUM
  8. NEURONTIN [Concomitant]
     Active Substance: GABAPENTIN
  9. IBUPROFEN. [Concomitant]
     Active Substance: IBUPROFEN
  10. PROCRIT [Suspect]
     Active Substance: ERYTHROPOIETIN
     Indication: SICKLE CELL ANAEMIA
     Dosage: ?          OTHER FREQUENCY:WEEKLY;?
     Route: 058
     Dates: start: 20160209
  11. FOLGARD [Concomitant]
  12. LOPRESSOR [Concomitant]
     Active Substance: METOPROLOL TARTRATE

REACTIONS (1)
  - Hospitalisation [None]
